FAERS Safety Report 4843460-4 (Version None)
Quarter: 2005Q4

REPORT INFORMATION
  Report Type: 
  Country: None (occurrence: None)
  Receive Date: 20051027
  Receipt Date: 20041007
  Transmission Date: 20060501
  Serious: Yes (Other)
  Sender: FDA-Public Use
  Company Number: HQWYE697011OCT04

PATIENT
  Age: 71 Year
  Sex: Female

DRUGS (6)
  1. PREMARIN [Suspect]
     Indication: CARDIAC DISORDER
     Dosage: ORAL
     Route: 048
     Dates: start: 19900101
  2. PREMARIN [Suspect]
     Indication: MENOPAUSAL SYMPTOMS
     Dosage: ORAL
     Route: 048
     Dates: start: 19900101
  3. PREMARIN [Suspect]
     Indication: PROPHYLAXIS
     Dosage: ORAL
     Route: 048
     Dates: start: 19900101
  4. MEDROXYPROGESTERONE [Suspect]
     Indication: CARDIAC DISORDER
  5. MEDROXYPROGESTERONE [Suspect]
     Indication: MENOPAUSAL SYMPTOMS
  6. MEDROXYPROGESTERONE [Suspect]
     Indication: PROPHYLAXIS

REACTIONS (1)
  - BREAST CANCER [None]
